FAERS Safety Report 4974944-6 (Version None)
Quarter: 2006Q2

REPORT INFORMATION
  Report Type: 
  Country: None (occurrence: None)
  Receive Date: 20060418
  Receipt Date: 20060202
  Transmission Date: 20061013
  Serious: Yes (Other)
  Sender: FDA-Public Use
  Company Number: US-ROCHE-434957

PATIENT
  Age: 50 Year
  Sex: Female
  Weight: 104.3 kg

DRUGS (9)
  1. BONIVA [Suspect]
     Indication: OSTEOPOROSIS PROPHYLAXIS
     Route: 048
     Dates: start: 20050615
  2. ACTONEL [Concomitant]
     Indication: OSTEOPOROSIS PROPHYLAXIS
     Route: 048
     Dates: start: 20000615, end: 20050615
  3. PREVACID [Concomitant]
     Route: 048
  4. VERAPAMIL [Concomitant]
     Route: 048
  5. ZELNORM [Concomitant]
     Indication: IRRITABLE BOWEL SYNDROME
     Route: 048
  6. EFFEXOR [Concomitant]
  7. LIPITOR [Concomitant]
  8. XANAX [Concomitant]
  9. IMIPRAMINE [Concomitant]

REACTIONS (2)
  - FALL [None]
  - FOOT FRACTURE [None]
